FAERS Safety Report 12080373 (Version 4)
Quarter: 2017Q3

REPORT INFORMATION
  Report Type: Spontaneous
  Country: US (occurrence: US)
  Receive Date: 20160216
  Receipt Date: 20170705
  Transmission Date: 20171127
  Serious: Yes (Hospitalization, Other)
  Sender: FDA-Public Use
  Company Number: US-PFIZER INC-2016085209

PATIENT
  Age: 51 Year
  Sex: Female
  Weight: 99.79 kg

DRUGS (10)
  1. PROMETHAZINE [Concomitant]
     Active Substance: PROMETHAZINE\PROMETHAZINE HYDROCHLORIDE
     Dosage: UNK
  2. TIZANIDINE. [Concomitant]
     Active Substance: TIZANIDINE
     Indication: MUSCLE SPASMS
     Dosage: 4 MG, 3X/DAY
     Dates: start: 2006
  3. TIZANIDINE. [Concomitant]
     Active Substance: TIZANIDINE
     Indication: SCIATICA
  4. SYNTHROID [Concomitant]
     Active Substance: LEVOTHYROXINE SODIUM
     Indication: THYROID DISORDER
     Dosage: 50 UG, 1X/DAY; (ONCE IN THE MORNING)
     Dates: start: 201602
  5. PROAIR HFA [Concomitant]
     Active Substance: ALBUTEROL SULFATE
     Indication: CHRONIC OBSTRUCTIVE PULMONARY DISEASE
  6. LYRICA [Concomitant]
     Active Substance: PREGABALIN
     Indication: FIBROMYALGIA
     Dosage: 100 MG, 2X/DAY
     Route: 048
     Dates: start: 20160204
  7. ASPIRIN. [Concomitant]
     Active Substance: ASPIRIN
     Indication: PALPITATIONS
     Dosage: 325 MG, 1X/DAY
  8. PROAIR HFA [Concomitant]
     Active Substance: ALBUTEROL SULFATE
     Indication: ASTHMA
     Dosage: UNK UNK, 4X/DAY; (2 PUFFS BY MOUTH 4 TIMES A DAY)
     Route: 055
     Dates: start: 2016
  9. DILANTIN [Suspect]
     Active Substance: PHENYTOIN
     Dosage: 200 MG, 1X/DAY (TOOK 2 PILL THAT DAY AND NO MORE AFTER THAT)
     Dates: start: 20160201, end: 20160201
  10. LYRICA [Concomitant]
     Active Substance: PREGABALIN
     Indication: SEIZURE

REACTIONS (6)
  - Speech disorder [Not Recovered/Not Resolved]
  - Toxicity to various agents [Unknown]
  - Gait disturbance [Not Recovered/Not Resolved]
  - Malaise [Recovered/Resolved]
  - Confusional state [Not Recovered/Not Resolved]
  - Cerebrovascular accident [Not Recovered/Not Resolved]

NARRATIVE: CASE EVENT DATE: 201602
